FAERS Safety Report 19420378 (Version 1)
Quarter: 2021Q2

REPORT INFORMATION
  Report Type: Spontaneous
  Country: US (occurrence: US)
  Receive Date: 20210615
  Receipt Date: 20210615
  Transmission Date: 20210717
  Serious: Yes (Other)
  Sender: FDA-Public Use
  Company Number: US-MALLINCKRODT PHARMACEUTICALS-T202102593

PATIENT
  Sex: Male

DRUGS (8)
  1. H.P. ACTHAR [Suspect]
     Active Substance: CORTICOTROPIN
     Indication: INFANTILE SPASMS
     Dosage: 0.3ML, TWICE DAILY, DAYS 1?14
     Route: 030
  2. H.P. ACTHAR [Suspect]
     Active Substance: CORTICOTROPIN
     Dosage: 0.25ML, ONCE DAILY, DAYS 36?42
     Route: 030
  3. H.P. ACTHAR [Suspect]
     Active Substance: CORTICOTROPIN
     Dosage: 0.13ML, ONCE DAILY, DAYS 34?49
     Route: 030
  4. VIGABATRIN. [Suspect]
     Active Substance: VIGABATRIN
     Dosage: 50 (UNITS UNKNOWN), BID
     Route: 065
  5. H.P. ACTHAR [Suspect]
     Active Substance: CORTICOTROPIN
     Dosage: 0.13ML, DAYS 50?56, EVERY OTHER DAY
     Route: 030
  6. VIGABATRIN. [Suspect]
     Active Substance: VIGABATRIN
     Indication: PRODUCT USED FOR UNKNOWN INDICATION
     Dosage: 300 (UNITS UNKNOWN), BID
     Route: 065
  7. H.P. ACTHAR [Suspect]
     Active Substance: CORTICOTROPIN
     Dosage: 0.38ML, ONCE DAILY, DAYS 29?35
     Route: 030
  8. H.P. ACTHAR [Suspect]
     Active Substance: CORTICOTROPIN
     Dosage: 0.5ML, ONCE DAILY,DAYS 15?28
     Route: 030

REACTIONS (2)
  - Bradycardia [Unknown]
  - Oxygen saturation decreased [Unknown]
